FAERS Safety Report 7770457-7 (Version None)
Quarter: 2011Q3

REPORT INFORMATION
  Report Type: 
  Country: None (occurrence: None)
  Receive Date: 20110922
  Receipt Date: 20090721
  Transmission Date: 20111222
  Serious: No
  Sender: FDA-Public Use
  Company Number: US-ASTRAZENECA-2009UW13466

PATIENT
  Age: 5941 Day
  Sex: Male
  Weight: 120.2 kg

DRUGS (7)
  1. GEODON [Concomitant]
     Dates: start: 20090101
  2. TEGRETOL [Concomitant]
     Dosage: 200 MG FOUR AM AND THREE PM
     Dates: start: 20060418
  3. SEROQUEL [Suspect]
     Dosage: 100 MG ONE AT AM AND THREE AT PM
     Route: 048
     Dates: start: 20060418
  4. KLONOPIN [Concomitant]
     Dosage: 0.5 MG 1/2 AM
     Dates: start: 20060418
  5. SEROQUEL [Suspect]
     Indication: OBSESSIVE-COMPULSIVE DISORDER
     Route: 048
     Dates: start: 20030901, end: 20090201
  6. SEROQUEL [Suspect]
     Indication: SCHIZOPHRENIA
     Route: 048
     Dates: start: 20030901, end: 20090201
  7. SEROQUEL [Suspect]
     Dosage: 100 MG ONE AT AM AND THREE AT PM
     Route: 048
     Dates: start: 20060418

REACTIONS (3)
  - DIABETES MELLITUS INADEQUATE CONTROL [None]
  - TYPE 2 DIABETES MELLITUS [None]
  - OBESITY [None]
